FAERS Safety Report 7808985-8 (Version None)
Quarter: 2011Q4

REPORT INFORMATION
  Report Type: 
  Country: None (occurrence: None)
  Receive Date: 20111006
  Receipt Date: 20110920
  Transmission Date: 20120403
  Serious: Yes (Life-Threatening, Hospitalization, Other)
  Sender: FDA-Public Use
  Company Number: 2011MA014170

PATIENT
  Age: 7 Year
  Sex: Male

DRUGS (1)
  1. CARBAMAZEPINE [Suspect]
     Indication: EPILEPSY

REACTIONS (11)
  - RASH [None]
  - FACE OEDEMA [None]
  - ORAL MUCOSAL EXFOLIATION [None]
  - BLISTER [None]
  - GENERAL PHYSICAL HEALTH DETERIORATION [None]
  - TOXIC EPIDERMAL NECROLYSIS [None]
  - PYREXIA [None]
  - ODYNOPHAGIA [None]
  - MOUTH ULCERATION [None]
  - CORNEAL TRANSPLANT [None]
  - MALAISE [None]
